FAERS Safety Report 23369855 (Version 1)
Quarter: 2024Q1

REPORT INFORMATION
  Report Type: Spontaneous
  Country: NL (occurrence: NL)
  Receive Date: 20240105
  Receipt Date: 20240105
  Transmission Date: 20240409
  Serious: Yes (Hospitalization)
  Sender: FDA-Public Use
  Company Number: None

PATIENT
  Age: 79 Year
  Weight: 115 kg

DRUGS (9)
  1. CIPROFLOXACIN [Suspect]
     Active Substance: CIPROFLOXACIN
     Indication: Urinary tract infection
     Dosage: 750MG TWICE A DAY, BRAND NAME NOT SPECIFIED
     Route: 065
     Dates: start: 20231021, end: 20231024
  2. EZETIMIBE [Concomitant]
     Active Substance: EZETIMIBE
     Dosage: BRAND NAME NOT SPECIFIED
  3. OXAZEPAM [Concomitant]
     Active Substance: OXAZEPAM
     Dosage: BRAND NAME NOT SPECIFIED
  4. SIMVASTATIN [Concomitant]
     Active Substance: SIMVASTATIN
     Dosage: BRAND NAME NOT SPECIFIED
  5. DISOPYRAMIDE PHOSPHATE [Suspect]
     Active Substance: DISOPYRAMIDE PHOSPHATE
     Indication: Atrial fibrillation
     Dosage: RETARD TABLET MGA,125MG TWICE A DAY
     Route: 065
     Dates: start: 20190101
  6. EDOXABAN TOSYLATE [Concomitant]
     Active Substance: EDOXABAN TOSYLATE
     Dosage: LIXIANA TABLET FILM-COATED 60MG
  7. PANTOPRAZOLE SODIUM [Concomitant]
     Active Substance: PANTOPRAZOLE SODIUM
     Dosage: MSR 20MG, BRAND NAME NOT SPECIFIED
  8. METOPROLOL [Concomitant]
     Active Substance: METOPROLOL
     Dosage: 12.5 MG (MILLIGRAM), METOPROLOL TARTRATE 12.5MG NVZA
     Route: 065
  9. CHOLECALCIFEROL [Concomitant]
     Active Substance: CHOLECALCIFEROL
     Dosage: COLECALCIFEROL CAPSULE 5600IE / BRAND NAME NOT SPECIFIED, CAPSULE, 5600 UNITS
     Route: 065

REACTIONS (1)
  - Electrocardiogram QT prolonged [Recovered/Resolved]

NARRATIVE: CASE EVENT DATE: 20231023
